FAERS Safety Report 25598833 (Version 2)
Quarter: 2025Q3

REPORT INFORMATION
  Report Type: Spontaneous
  Country: US (occurrence: US)
  Receive Date: 20250724
  Receipt Date: 20250731
  Transmission Date: 20251020
  Serious: No
  Sender: ROCHE
  Company Number: US-ROCHE-10000339396

PATIENT
  Sex: Male

DRUGS (1)
  1. XOLAIR [Suspect]
     Active Substance: OMALIZUMAB
     Indication: Food allergy
     Dosage: 3 TO 4 MONTHS PRIOR OMALIZUMAB WAS ADMINISTERED BEFORE EVENT.
     Route: 058
     Dates: start: 20250205

REACTIONS (1)
  - Urticaria [Recovered/Resolved]
